FAERS Safety Report 13382158 (Version 10)
Quarter: 2017Q4

REPORT INFORMATION
  Report Type: Spontaneous
  Country: US (occurrence: US)
  Receive Date: 20170329
  Receipt Date: 20171216
  Transmission Date: 20180320
  Serious: Yes (Hospitalization, Other)
  Sender: FDA-Public Use
  Company Number: US-ROCHE-1911809

PATIENT
  Age: 35 Year
  Sex: Female

DRUGS (5)
  1. HAEGARDA [Suspect]
     Active Substance: HUMAN C1-ESTERASE INHIBITOR
     Indication: PRODUCT USED FOR UNKNOWN INDICATION
     Route: 065
  2. XOLAIR [Suspect]
     Active Substance: OMALIZUMAB
     Indication: ILL-DEFINED DISORDER
     Route: 058
     Dates: start: 20160120
  3. XOLAIR [Suspect]
     Active Substance: OMALIZUMAB
     Route: 058
     Dates: start: 20170303
  4. XOLAIR [Suspect]
     Active Substance: OMALIZUMAB
     Route: 058
     Dates: start: 20170302
  5. XOLAIR [Suspect]
     Active Substance: OMALIZUMAB
     Indication: MENORRHAGIA
     Route: 058
     Dates: start: 20170301

REACTIONS (10)
  - Swelling face [Unknown]
  - Intentional product use issue [Unknown]
  - Abdominal distension [Unknown]
  - Feeding disorder [Unknown]
  - Swelling [Unknown]
  - Swollen tongue [Unknown]
  - Off label use [Unknown]
  - Pharyngeal oedema [Unknown]
  - Blood potassium decreased [Unknown]
  - Hereditary angioedema [Unknown]

NARRATIVE: CASE EVENT DATE: 20170424
